FAERS Safety Report 5469752-6 (Version None)
Quarter: 2007Q3

REPORT INFORMATION
  Report Type: 
  Country: None (occurrence: None)
  Receive Date: 20070927
  Receipt Date: 20070917
  Transmission Date: 20080115
  Serious: Yes (Hospitalization)
  Sender: FDA-Public Use
  Company Number: AR-AMGEN-US244817

PATIENT
  Age: 54 Year
  Sex: Female
  Weight: 53 kg

DRUGS (1)
  1. ENBREL [Suspect]
     Indication: RHEUMATOID ARTHRITIS
     Route: 058
     Dates: start: 20070119

REACTIONS (4)
  - ABDOMINAL PAIN UPPER [None]
  - ANOREXIA [None]
  - CHOLELITHIASIS [None]
  - WEIGHT DECREASED [None]
